FAERS Safety Report 6936898-2 (Version None)
Quarter: 2010Q3

REPORT INFORMATION
  Report Type: 
  Country: None (occurrence: None)
  Receive Date: 20100823
  Receipt Date: 20100817
  Transmission Date: 20110219
  Serious: Yes (Hospitalization)
  Sender: FDA-Public Use
  Company Number: US-BRISTOL-MYERS SQUIBB COMPANY-15244411

PATIENT
  Age: 46 Year
  Sex: Female

DRUGS (4)
  1. REYATAZ [Suspect]
     Dates: start: 20100609
  2. TENOFOVIR [Suspect]
  3. NORVIR [Concomitant]
  4. ZIDOVUDINE [Concomitant]

REACTIONS (1)
  - RENAL FAILURE ACUTE [None]
